FAERS Safety Report 5227068-7 (Version None)
Quarter: 2007Q1

REPORT INFORMATION
  Report Type: 
  Country: None (occurrence: None)
  Receive Date: 20070202
  Receipt Date: 20070129
  Transmission Date: 20070707
  Serious: Yes (Other)
  Sender: FDA-Public Use
  Company Number: 2007UW01740

PATIENT
  Age: 57 Year
  Sex: Female

DRUGS (3)
  1. TOPROL-XL [Suspect]
     Indication: BLOOD PRESSURE ABNORMAL
     Route: 048
     Dates: start: 20010101
  2. TOPROL-XL [Suspect]
     Route: 048
  3. ANTI-DEPRESSANTS [Concomitant]

REACTIONS (1)
  - SUICIDE ATTEMPT [None]
